FAERS Safety Report 12881063 (Version 1)
Quarter: 2016Q4

REPORT INFORMATION
  Report Type: Spontaneous
  Country: US (occurrence: US)
  Receive Date: 20161024
  Receipt Date: 20161024
  Transmission Date: 20170207
  Serious: Yes (Life-Threatening, Hospitalization)
  Sender: FDA-Public Use
  Company Number: None

PATIENT
  Age: 78 Year
  Sex: Male
  Weight: 111.8 kg

DRUGS (1)
  1. MORPHINE [Suspect]
     Active Substance: MORPHINE
     Indication: PAIN
     Route: 030
     Dates: start: 20160616, end: 20160617

REACTIONS (13)
  - Pallor [None]
  - Skin warm [None]
  - Pruritus generalised [None]
  - Snoring [None]
  - Dry skin [None]
  - Cold sweat [None]
  - Flushing [None]
  - Erythema [None]
  - Hypotension [None]
  - Syncope [None]
  - Respiration abnormal [None]
  - Pulse absent [None]
  - Urticaria [None]

NARRATIVE: CASE EVENT DATE: 20160616
